FAERS Safety Report 9281254 (Version 3)
Quarter: 2013Q2

REPORT INFORMATION
  Report Type: Spontaneous
  Country: US (occurrence: None)
  Receive Date: 20130502
  Receipt Date: 20130613
  Transmission Date: 20140414
  Serious: Yes (Other)
  Sender: FDA-Public Use
  Company Number: AUR-APL-2013-03596

PATIENT
  Age: 82 Year
  Sex: Female

DRUGS (3)
  1. CITALOPRAM [Suspect]
     Indication: PRODUCT USED FOR UNKNOWN INDICATION
     Dates: start: 201212
  2. ARMOUR THYROID [Suspect]
     Indication: HYPOTHYROIDISM
     Dates: start: 201212
  3. ACETAMINOPHEN\HYDROCODONE BITARTRATE [Suspect]
     Indication: BACK PAIN

REACTIONS (3)
  - Blood pressure increased [None]
  - Feeling hot [None]
  - Procedural complication [None]
